FAERS Safety Report 16168449 (Version 2)
Quarter: 2019Q2

REPORT INFORMATION
  Report Type: Spontaneous
  Country: US (occurrence: US)
  Receive Date: 20190408
  Receipt Date: 20190417
  Transmission Date: 20190711
  Serious: No
  Sender: FDA-Public Use
  Company Number: US-HORIZON-KRY-0163-2019

PATIENT
  Age: 36 Year
  Sex: Female

DRUGS (2)
  1. INDOCIN [Concomitant]
     Active Substance: INDOMETHACIN
     Indication: PAIN
  2. KRYSTEXXA [Suspect]
     Active Substance: PEGLOTICASE
     Indication: GOUTY TOPHUS
     Dosage: 8 MG/ML
     Dates: start: 20190328, end: 20190328

REACTIONS (1)
  - Vomiting [Recovered/Resolved]

NARRATIVE: CASE EVENT DATE: 20190329
